FAERS Safety Report 18367560 (Version 1)
Quarter: 2020Q4

REPORT INFORMATION
  Report Type: Report from Study
  Country: NO (occurrence: NO)
  Receive Date: 20201009
  Receipt Date: 20201009
  Transmission Date: 20210114
  Serious: Yes (Other)
  Sender: FDA-Public Use
  Company Number: NO-JNJFOC-20201004376

PATIENT

DRUGS (2)
  1. REMICADE [Suspect]
     Active Substance: INFLIXIMAB
     Indication: CROHN^S DISEASE
  2. REMICADE [Suspect]
     Active Substance: INFLIXIMAB
     Indication: COLITIS ULCERATIVE
     Route: 042

REACTIONS (20)
  - Gastroenteritis [Unknown]
  - Rash [Unknown]
  - Nephrolithiasis [Unknown]
  - Depression [Unknown]
  - Drug level below therapeutic [Unknown]
  - Cholecystitis [Unknown]
  - Iron deficiency anaemia [Unknown]
  - Nasopharyngitis [Unknown]
  - Ear infection [Unknown]
  - Influenza [Unknown]
  - Arthralgia [Unknown]
  - Headache [Unknown]
  - Nausea [Unknown]
  - Anaemia [Unknown]
  - Urinary tract infection [Unknown]
  - Back pain [Unknown]
  - Hepatic enzyme increased [Unknown]
  - Sinusitis [Unknown]
  - Infusion related reaction [Unknown]
  - Drug specific antibody present [Unknown]
